FAERS Safety Report 7298936-X (Version None)
Quarter: 2011Q1

REPORT INFORMATION
  Report Type: 
  Country: None (occurrence: None)
  Receive Date: 20110217
  Receipt Date: 20110214
  Transmission Date: 20110831
  Serious: Yes (Other)
  Sender: FDA-Public Use
  Company Number: PHHY2010US25134

PATIENT
  Age: 23 Year
  Sex: Female

DRUGS (1)
  1. TOBI [Suspect]
     Indication: CYSTIC FIBROSIS
     Dosage: 300 MG, BID FOR 28 DAYS ON THEN 28 DAYS OFF
     Dates: start: 20080514

REACTIONS (2)
  - INFECTION [None]
  - UPPER RESPIRATORY TRACT INFECTION [None]
